FAERS Safety Report 23959651 (Version 2)
Quarter: 2024Q2

REPORT INFORMATION
  Report Type: Report from Study
  Country: US (occurrence: US)
  Receive Date: 20240611
  Receipt Date: 20240613
  Transmission Date: 20240716
  Serious: Yes (Other)
  Sender: FDA-Public Use
  Company Number: US-ABBVIE-5792126

PATIENT
  Sex: Female

DRUGS (1)
  1. RINVOQ [Suspect]
     Active Substance: UPADACITINIB
     Indication: Ankylosing spondylitis
     Dosage: LAST ADMIN DATE: 2024
     Route: 048
     Dates: start: 202401

REACTIONS (6)
  - Eye operation [Unknown]
  - Cardiac arrest [Not Recovered/Not Resolved]
  - Splinter [Not Recovered/Not Resolved]
  - Pain [Not Recovered/Not Resolved]
  - Wound infection [Not Recovered/Not Resolved]
  - Ankylosing spondylitis [Unknown]

NARRATIVE: CASE EVENT DATE: 20240101
